FAERS Safety Report 17518617 (Version 1)
Quarter: 2020Q1

REPORT INFORMATION
  Report Type: Spontaneous
  Country: US (occurrence: US)
  Receive Date: 20200310
  Receipt Date: 20200310
  Transmission Date: 20200409
  Serious: Yes (Hospitalization)
  Sender: FDA-Public Use
  Company Number: US-BRISTOL-MYERS SQUIBB COMPANY-BMS-2020-017660

PATIENT
  Sex: Male
  Weight: 95.2 kg

DRUGS (1)
  1. KENALOG-40 [Suspect]
     Active Substance: TRIAMCINOLONE ACETONIDE
     Indication: NASAL INFLAMMATION
     Dosage: 40 UNITS NOT REPORTED
     Route: 065
     Dates: start: 2018

REACTIONS (1)
  - Hypersensitivity [Recovering/Resolving]
